FAERS Safety Report 8780337 (Version 1)
Quarter: 2012Q4

REPORT INFORMATION
  Report Type: Spontaneous
  Country: US (occurrence: None)
  Receive Date: 20120905
  Receipt Date: 20120905
  Transmission Date: 20130627
  Serious: No
  Sender: FDA-Public Use
  Company Number: None

PATIENT
  Age: 70 Year
  Sex: Female
  Weight: 142.88 kg

DRUGS (1)
  1. BACTRIM DS [Suspect]
     Indication: UTI
     Route: 048
     Dates: start: 20120803, end: 20120804

REACTIONS (1)
  - Rash erythematous [None]
